FAERS Safety Report 22015773 (Version 1)
Quarter: 2023Q1

REPORT INFORMATION
  Report Type: Other
  Country: RO (occurrence: None)
  Receive Date: 20230221
  Receipt Date: 20230221
  Transmission Date: 20230417
  Serious: Yes (Other)
  Sender: FDA-Public Use
  Company Number: RO-ROCHE-2660336

PATIENT
  Sex: Male
  Weight: 110 kg

DRUGS (3)
  1. TOCILIZUMAB [Suspect]
     Active Substance: TOCILIZUMAB
     Indication: Rheumatoid arthritis
     Route: 058
  2. TOCILIZUMAB [Suspect]
     Active Substance: TOCILIZUMAB
     Indication: COVID-19
  3. MABTHERA [Suspect]
     Active Substance: RITUXIMAB
     Indication: Rheumatoid arthritis
     Route: 065
     Dates: start: 20200924

REACTIONS (9)
  - Procalcitonin increased [Unknown]
  - Musculoskeletal pain [Unknown]
  - Weight decreased [Unknown]
  - Arthralgia [Unknown]
  - Hand deformity [Unknown]
  - Malaise [Unknown]
  - Drug ineffective [Unknown]
  - Gait disturbance [Unknown]
  - Hand deformity [Unknown]
